FAERS Safety Report 6410608-X (Version None)
Quarter: 2009Q4

REPORT INFORMATION
  Report Type: 
  Country: None (occurrence: None)
  Receive Date: 20091022
  Receipt Date: 20091015
  Transmission Date: 20100525
  Serious: Yes (Hospitalization)
  Sender: FDA-Public Use
  Company Number: US-BIOGENIDEC-2009BI031301

PATIENT
  Age: 53 Year
  Sex: Female

DRUGS (1)
  1. AVONEX [Suspect]
     Indication: MULTIPLE SCLEROSIS
     Route: 030
     Dates: start: 20030410

REACTIONS (7)
  - ABASIA [None]
  - CEREBRAL SARCOIDOSIS [None]
  - FALL [None]
  - FATIGUE [None]
  - MUSCULOSKELETAL DISORDER [None]
  - PAIN [None]
  - PARAESTHESIA [None]
